FAERS Safety Report 5930693-9 (Version None)
Quarter: 2008Q4

REPORT INFORMATION
  Report Type: 
  Country: None (occurrence: None)
  Receive Date: 20081024
  Receipt Date: 20081024
  Transmission Date: 20090506
  Serious: Yes (Other)
  Sender: FDA-Public Use
  Company Number: None

PATIENT
  Sex: Female

DRUGS (1)
  1. ENBREL [Suspect]
     Indication: RHEUMATOID ARTHRITIS
     Dosage: 50MG QWEEK SUBCUTANEOUSLY
     Route: 058
     Dates: start: 20070111, end: 20080128

REACTIONS (2)
  - BRAIN NEOPLASM [None]
  - DEEP VEIN THROMBOSIS [None]
